FAERS Safety Report 8896169 (Version 2)
Quarter: 2013Q1

REPORT INFORMATION
  Report Type: Spontaneous
  Country: BR (occurrence: BR)
  Receive Date: 20121108
  Receipt Date: 20130117
  Transmission Date: 20140127
  Serious: Yes (Hospitalization)
  Sender: FDA-Public Use
  Company Number: PHHY2012BR102487

PATIENT
  Sex: 0

DRUGS (5)
  1. DIOVAN [Suspect]
     Indication: BLOOD PRESSURE
     Dosage: 1 DF, (160 MG) DAILY
     Route: 048
     Dates: start: 201210
  2. ZETSIM [Concomitant]
     Indication: BLOOD CHOLESTEROL
     Dosage: 1 DF, (10/20 MG) DAILY
     Route: 048
  3. CLOPIDOGREL BISULFATE [Concomitant]
     Indication: COAGULOPATHY
     Dosage: 1 DF, (75 MG) DAILY
     Route: 048
  4. SIGMATRIOL [Concomitant]
     Indication: OSTEOPOROSIS
     Dosage: 1 DF, (0.25 UG) DAILY
     Route: 048
  5. SELOZOK [Concomitant]
     Dosage: 1 DF, (50 MG) DAILY
     Route: 048

REACTIONS (7)
  - Cardiac disorder [Recovering/Resolving]
  - Renal disorder [Recovering/Resolving]
  - Fluid retention [Not Recovered/Not Resolved]
  - Lung disorder [Recovering/Resolving]
  - Cough [Recovering/Resolving]
  - Arrhythmia [Recovered/Resolved]
  - Hypotension [Unknown]
